FAERS Safety Report 13536149 (Version 1)
Quarter: 2017Q2

REPORT INFORMATION
  Report Type: Not Available
  Country: BE (occurrence: BE)
  Receive Date: 20170511
  Receipt Date: 20170511
  Transmission Date: 20170830
  Serious: Yes (Other)
  Sender: FDA-Public Use
  Company Number: BE-IDTAUSTRALIA-2017-BE-000003

PATIENT
  Age: 3 Year
  Sex: 0

DRUGS (3)
  1. ASPARIGINASE [Suspect]
     Active Substance: ASPARAGINASE
     Dosage: 1000 UNITS/M2
     Route: 042
  2. PREDNISOLONE. [Suspect]
     Active Substance: PREDNISOLONE
     Dosage: 60 MG/M2
     Route: 065
  3. DEXAMETHASONE (NON-SPECIFIC) [Suspect]
     Active Substance: DEXAMETHASONE
     Dosage: 6 MG/M2
     Route: 065

REACTIONS (2)
  - Subclavian vein thrombosis [Unknown]
  - Device related infection [Unknown]
